FAERS Safety Report 5816356-9 (Version None)
Quarter: 2008Q3

REPORT INFORMATION
  Report Type: 
  Country: None (occurrence: None)
  Receive Date: 20080721
  Receipt Date: 20080204
  Transmission Date: 20090109
  Serious: No
  Sender: FDA-Public Use
  Company Number: US-BAUSCH-2008BL000489

PATIENT
  Age: 76 Year
  Sex: Female

DRUGS (2)
  1. OPCON-A [Suspect]
     Indication: EYE ALLERGY
     Route: 047
     Dates: start: 20080130, end: 20080130
  2. OPCON-A [Suspect]
     Indication: OCULAR HYPERAEMIA
     Route: 047
     Dates: start: 20080130, end: 20080130

REACTIONS (5)
  - CONDITION AGGRAVATED [None]
  - EYE IRRITATION [None]
  - EYELIDS PRURITUS [None]
  - KERATOCONJUNCTIVITIS SICCA [None]
  - OCULAR HYPERAEMIA [None]
